FAERS Safety Report 10593607 (Version 1)
Quarter: 2014Q4

REPORT INFORMATION
  Report Type: Spontaneous
  Country: US (occurrence: US)
  Receive Date: 20141119
  Receipt Date: 20141119
  Transmission Date: 20150529
  Serious: Yes (Other)
  Sender: FDA-Public Use
  Company Number: US-BAYER-2014-167918

PATIENT
  Age: 35 Year
  Sex: Female

DRUGS (1)
  1. MIRENA [Suspect]
     Active Substance: LEVONORGESTREL
     Indication: CONTRACEPTION
     Dosage: 20 MCG/24HR, CONT
     Route: 015
     Dates: start: 20140917, end: 20141020

REACTIONS (14)
  - Chest pain [Recovering/Resolving]
  - Vertigo [Recovering/Resolving]
  - Anxiety [Recovering/Resolving]
  - Migraine [Recovering/Resolving]
  - Muscle twitching [Recovering/Resolving]
  - Back pain [Recovering/Resolving]
  - Vision blurred [Recovering/Resolving]
  - Palpitations [Recovering/Resolving]
  - Diarrhoea [Recovering/Resolving]
  - Vaginal infection [Recovered/Resolved]
  - Pelvic pain [Recovering/Resolving]
  - Hypoaesthesia [None]
  - Paraesthesia [Recovering/Resolving]
  - Arthralgia [None]

NARRATIVE: CASE EVENT DATE: 2014
